FAERS Safety Report 20624785 (Version 1)
Quarter: 2022Q1

REPORT INFORMATION
  Report Type: Spontaneous
  Country: GB (occurrence: GB)
  Receive Date: 20220323
  Receipt Date: 20220323
  Transmission Date: 20220424
  Serious: Yes (Other)
  Sender: FDA-Public Use
  Company Number: GB-MHRA-MED-202203101555591970-KAX7J

PATIENT
  Age: 78 Year
  Sex: Female
  Weight: 67 kg

DRUGS (1)
  1. CITALOPRAM HYDROBROMIDE [Suspect]
     Active Substance: CITALOPRAM HYDROBROMIDE
     Indication: Anxiety
     Dosage: UNK (10MG ONCE DAILY; ;)
     Route: 065
     Dates: end: 202112

REACTIONS (1)
  - Muscle spasms [Recovered/Resolved]
